FAERS Safety Report 11624643 (Version 1)
Quarter: 2015Q4

REPORT INFORMATION
  Report Type: Spontaneous
  Country: AM (occurrence: AM)
  Receive Date: 20151013
  Receipt Date: 20151013
  Transmission Date: 20160304
  Serious: Yes (Death)
  Sender: FDA-Public Use
  Company Number: AM-ROCHE-1643775

PATIENT
  Age: 45 Year
  Sex: Female

DRUGS (1)
  1. HERCEPTIN [Suspect]
     Active Substance: TRASTUZUMAB
     Indication: BREAST CANCER
     Route: 042
     Dates: start: 20150901, end: 20150930

REACTIONS (2)
  - Carcinogenicity [Fatal]
  - Metastases to central nervous system [Fatal]
